FAERS Safety Report 6327980-1 (Version None)
Quarter: 2009Q3

REPORT INFORMATION
  Report Type: 
  Country: None (occurrence: None)
  Receive Date: 20090825
  Receipt Date: 20081201
  Transmission Date: 20100115
  Serious: No
  Sender: FDA-Public Use
  Company Number: US-ABBOTT-08P-163-0490581-00

PATIENT
  Sex: Female

DRUGS (4)
  1. SYNTHROID [Suspect]
     Indication: HORMONE REPLACEMENT THERAPY
  2. SYNTHROID [Suspect]
  3. SYNTHROID [Suspect]
  4. CARAFATE [Concomitant]
     Indication: GASTRITIS

REACTIONS (7)
  - ABDOMINAL PAIN UPPER [None]
  - BLOOD PRESSURE INCREASED [None]
  - CHEST DISCOMFORT [None]
  - DRUG TOXICITY [None]
  - NAUSEA [None]
  - PAIN [None]
  - PALPITATIONS [None]
